FAERS Safety Report 16725750 (Version 1)
Quarter: 2019Q3

REPORT INFORMATION
  Report Type: Report from Study
  Country: CN (occurrence: CN)
  Receive Date: 20190821
  Receipt Date: 20190821
  Transmission Date: 20191005
  Serious: Yes (Other)
  Sender: FDA-Public Use
  Company Number: CN-ELI_LILLY_AND_COMPANY-CN201907007211

PATIENT
  Age: 63 Year
  Sex: Female

DRUGS (3)
  1. INSULIN, LISPRO [Suspect]
     Active Substance: INSULIN LISPRO
     Dosage: UNK UNK, UNKNOWN
     Route: 058
  2. INSULIN, LISPRO [Suspect]
     Active Substance: INSULIN LISPRO
     Dosage: 10 U, EACH EVENING
     Route: 058
  3. INSULIN, LISPRO [Suspect]
     Active Substance: INSULIN LISPRO
     Indication: DIABETES MELLITUS
     Dosage: 20 U, EACH MORNING
     Route: 058

REACTIONS (4)
  - Unresponsive to stimuli [Unknown]
  - Visual impairment [Unknown]
  - Blood glucose decreased [Recovering/Resolving]
  - Blood glucose fluctuation [Recovering/Resolving]
